FAERS Safety Report 6888081-7 (Version None)
Quarter: 2010Q3

REPORT INFORMATION
  Report Type: 
  Country: None (occurrence: None)
  Receive Date: 20100730
  Receipt Date: 20100701
  Transmission Date: 20110219
  Serious: Yes (Hospitalization, Other)
  Sender: FDA-Public Use
  Company Number: CO-PFIZER INC-2010014569

PATIENT
  Age: 12 Year
  Sex: Male

DRUGS (3)
  1. PHENYTOIN SODIUM CAP [Suspect]
     Indication: EPILEPSY
     Dosage: 4 CM, TWICE A DAY
     Route: 048
     Dates: start: 20090215
  2. CLOBAZAM [Concomitant]
     Indication: CONVULSION
     Dosage: 10 MG, 3X/DAY
     Dates: start: 20000101
  3. CLOBAZAM [Concomitant]
     Indication: EPILEPSY

REACTIONS (3)
  - ANIMAL BITE [None]
  - CONSTIPATION [None]
  - CONVULSION [None]
